FAERS Safety Report 10453224 (Version 1)
Quarter: 2014Q3

REPORT INFORMATION
  Report Type: Spontaneous
  Country: US (occurrence: None)
  Receive Date: 20140912
  Receipt Date: 20140912
  Transmission Date: 20150326
  Serious: Yes (Other)
  Sender: FDA-Public Use
  Company Number: None

PATIENT
  Age: 21 Year
  Sex: Male
  Weight: 65.77 kg

DRUGS (1)
  1. HUMIRA [Suspect]
     Active Substance: ADALIMUMAB
     Indication: PSORIASIS
     Dates: start: 20140407, end: 20140908

REACTIONS (4)
  - Ear infection [None]
  - Immunodeficiency [None]
  - Staphylococcal infection [None]
  - Upper respiratory tract infection [None]

NARRATIVE: CASE EVENT DATE: 20140908
